FAERS Safety Report 18331264 (Version 1)
Quarter: 2020Q3

REPORT INFORMATION
  Report Type: Spontaneous
  Country: CA (occurrence: CA)
  Receive Date: 20200930
  Receipt Date: 20200930
  Transmission Date: 20201103
  Serious: Yes (Death, Other)
  Sender: FDA-Public Use
  Company Number: CA-JNJFOC-20200943373

PATIENT
  Age: 65 Year
  Sex: Female

DRUGS (37)
  1. ACETAMINOPHEN. [Concomitant]
     Active Substance: ACETAMINOPHEN
  2. FLOVENT HFA [Concomitant]
     Active Substance: FLUTICASONE PROPIONATE
  3. SENNA ALEXANDRINA [Concomitant]
     Active Substance: SENNA LEAF
  4. CALCIUM CARBONATE/VITAMIN D3 [Concomitant]
     Active Substance: CALCIUM CARBONATE\CHOLECALCIFEROL
  5. DEXAMETHASONE. [Concomitant]
     Active Substance: DEXAMETHASONE
  6. PMS PREGABALIN [Concomitant]
     Active Substance: PREGABALIN
  7. PREGABALIN. [Concomitant]
     Active Substance: PREGABALIN
     Route: 065
  8. DEXILANT [Concomitant]
     Active Substance: DEXLANSOPRAZOLE
     Dosage: DELAYED RELEASE
     Route: 065
  9. PMS?HYDROMORPHONE [Concomitant]
     Active Substance: HYDROMORPHONE HYDROCHLORIDE
  10. PMS?LORAZEPAM [Concomitant]
  11. QUETIAPINE. [Concomitant]
     Active Substance: QUETIAPINE
     Route: 065
  12. TEVA QUETIAPINE [Concomitant]
     Active Substance: QUETIAPINE
  13. VARENICLINE TARTRATE [Concomitant]
     Active Substance: VARENICLINE TARTRATE
  14. APO?PROCHLORAZINE [Concomitant]
     Active Substance: PROCHLORPERAZINE MALEATE
  15. FENTANYL. [Concomitant]
     Active Substance: FENTANYL
  16. VITAMIN D3 [Concomitant]
     Active Substance: CHOLECALCIFEROL
  17. ASACOL [Concomitant]
     Active Substance: MESALAMINE
     Indication: PRODUCT USED FOR UNKNOWN INDICATION
     Route: 048
  18. FOLIC ACID. [Concomitant]
     Active Substance: FOLIC ACID
  19. PREDNISONE. [Concomitant]
     Active Substance: PREDNISONE
     Route: 048
  20. PROCHLORPERAZINE. [Concomitant]
     Active Substance: PROCHLORPERAZINE
  21. SALBUTAMOL [Concomitant]
     Active Substance: ALBUTEROL
  22. VOLTAREN [Concomitant]
     Active Substance: DICLOFENAC SODIUM
     Route: 061
  23. XARELTO [Concomitant]
     Active Substance: RIVAROXABAN
     Route: 065
  24. INFLIXIMAB, RECOMBINANT [Suspect]
     Active Substance: INFLIXIMAB
     Indication: COLITIS ULCERATIVE
     Route: 042
  25. APO SULFATRIM [Concomitant]
     Active Substance: SULFAMETHOXAZOLE\TRIMETHOPRIM
  26. LOPERAMIDE HYDROCHLORIDE. [Concomitant]
     Active Substance: LOPERAMIDE HYDROCHLORIDE
  27. PAROXETINE HYDROCHLORIDE. [Concomitant]
     Active Substance: PAROXETINE HYDROCHLORIDE
  28. PMS?ONDANSETRON [Concomitant]
  29. JAMP ACETAMINOPHEN [Concomitant]
     Active Substance: ACETAMINOPHEN
  30. JAMP FOLIC ACID [Concomitant]
  31. SENNA                              /00142201/ [Concomitant]
     Active Substance: SENNA LEAF
     Dosage: JAMP SENNA
  32. RATIO?CLOBETASOL [Concomitant]
  33. SULFATRIM [Concomitant]
     Active Substance: SULFAMETHOXAZOLE\TRIMETHOPRIM
  34. MESALAZINE [Concomitant]
     Active Substance: MESALAMINE
     Indication: PRODUCT USED FOR UNKNOWN INDICATION
     Route: 054
  35. DILAUDID [Concomitant]
     Active Substance: HYDROMORPHONE HYDROCHLORIDE
  36. MACROGOL [Concomitant]
     Active Substance: POLYETHYLENE GLYCOLS
  37. VITAMIN B12 [Concomitant]
     Active Substance: CYANOCOBALAMIN
     Route: 030

REACTIONS (8)
  - Blood pressure fluctuation [Unknown]
  - Hypertension [Unknown]
  - Heart rate irregular [Unknown]
  - Death [Fatal]
  - Condition aggravated [Fatal]
  - White coat hypertension [Unknown]
  - Intentional product use issue [Unknown]
  - Off label use [Unknown]
